FAERS Safety Report 20889928 (Version 1)
Quarter: 2022Q2

REPORT INFORMATION
  Report Type: Other
  Country: SE (occurrence: SE)
  Receive Date: 20220530
  Receipt Date: 20220530
  Transmission Date: 20220721
  Serious: Yes (Life-Threatening, Hospitalization, Other)
  Sender: FDA-Public Use
  Company Number: SE-DENTSPLY-2022SCDP000131

PATIENT
  Age: 53 Year
  Sex: Female
  Weight: 65 kg

DRUGS (1)
  1. XYLOCAINE [Suspect]
     Active Substance: LIDOCAINE HYDROCHLORIDE
     Indication: Dental operation
     Dosage: 20 MG / ML + 12.5 MICROGRAMS / ML XYLOCAIN DENTAL ADRENALINE INJECTION FLUID, SOLUTION (4 SYRINGES)
     Dates: start: 20220412, end: 20220412

REACTIONS (7)
  - Myocarditis [None]
  - Chest pain [None]
  - Palpitations [None]
  - Stress [None]
  - Blood pressure increased [None]
  - Heart rate increased [None]
  - Tremor [None]

NARRATIVE: CASE EVENT DATE: 20220405
